FAERS Safety Report 5856665-0 (Version None)
Quarter: 2008Q3

REPORT INFORMATION
  Report Type: 
  Country: None (occurrence: None)
  Receive Date: 20080825
  Receipt Date: 20080818
  Transmission Date: 20090109
  Serious: Yes (Hospitalization)
  Sender: FDA-Public Use
  Company Number: US-PFIZER INC-2008068829

PATIENT
  Age: 74 Year
  Sex: Male
  Weight: 56 kg

DRUGS (25)
  1. METHYLPREDNISOLONE SODIUM SUCCINATE [Suspect]
     Indication: PNEUMONIA
     Dosage: DAILY DOSE:40MG
     Route: 042
     Dates: start: 20080715, end: 20080715
  2. PREDNISONE TAB [Suspect]
     Indication: PNEUMONIA
     Dosage: DAILY DOSE:20MG
     Route: 048
     Dates: start: 20080716, end: 20080725
  3. PREDNISONE TAB [Suspect]
     Dosage: DAILY DOSE:70.68ML
     Route: 042
     Dates: start: 20080715, end: 20080715
  4. METHYLPREDNISOLONE 16MG TAB [Suspect]
     Indication: PERCUTANEOUS CORONARY INTERVENTION
     Route: 048
     Dates: start: 20080715, end: 20080715
  5. METHYLPREDNISOLONE 16MG TAB [Suspect]
     Dosage: TEXT:4 CAPSULES-FREQ:FREQUENCY: SINGLE
     Route: 048
     Dates: start: 20080715, end: 20080715
  6. ASPIRIN [Concomitant]
  7. HEPARIN [Concomitant]
  8. BIVALIRUDIN [Concomitant]
  9. IPRATROPIUM BROMIDE [Concomitant]
  10. GUAIFENESIN [Concomitant]
  11. CEFTRIAXONE [Concomitant]
     Dates: start: 20080716, end: 20080817
  12. ALBUTEROL [Concomitant]
  13. ZOLPIDEM [Concomitant]
  14. MELOXICAM [Concomitant]
  15. BENAZEPRIL HYDROCHLORIDE [Concomitant]
  16. OXYBUTYNIN [Concomitant]
  17. HYDROCHLOROTHIAZIDE [Concomitant]
  18. SIMVASTATIN [Concomitant]
  19. CLOPIDOGREL [Concomitant]
  20. FLUTICASONE PROPIONATE [Concomitant]
  21. DILTIAZEM HCL [Concomitant]
  22. THEOPHYLLINE [Concomitant]
  23. OYSTER SHELL [Concomitant]
  24. AZITHROMYCIN [Concomitant]
  25. INSULIN ASPART [Concomitant]
     Dates: start: 20080716, end: 20080721

REACTIONS (1)
  - LEUKOCYTOSIS [None]
